FAERS Safety Report 4493956-2 (Version None)
Quarter: 2004Q4

REPORT INFORMATION
  Report Type: 
  Country: None (occurrence: None)
  Receive Date: 20041104
  Receipt Date: 20041104
  Transmission Date: 20050328
  Serious: Yes (Other)
  Sender: FDA-Public Use
  Company Number: None

PATIENT
  Age: 79 Year
  Sex: Female
  Weight: 80 kg

DRUGS (14)
  1. FARESTON [Suspect]
     Indication: BREAST CANCER
     Dosage: 60MG  QDAY   P.O.
     Route: 048
     Dates: start: 20020607, end: 20040714
  2. NORVASC [Concomitant]
  3. HYDROCHLOROTHIAZIDE [Concomitant]
  4. ATENOLOL [Concomitant]
  5. LISINOPRIL [Concomitant]
  6. GLYBURIDE [Concomitant]
  7. METFORMIN [Concomitant]
  8. HUMALOG MIX 75/25 [Concomitant]
  9. NEXIUM [Concomitant]
  10. LUMAGAN [Concomitant]
  11. ALPHAGAN [Concomitant]
  12. COSOPT [Concomitant]
  13. ATROPINE [Concomitant]
  14. PRED FORTE [Concomitant]

REACTIONS (1)
  - DEEP VEIN THROMBOSIS [None]
